FAERS Safety Report 18884366 (Version 2)
Quarter: 2021Q1

REPORT INFORMATION
  Report Type: Report from Study
  Country: None (occurrence: CA)
  Receive Date: 20210211
  Receipt Date: 20210305
  Transmission Date: 20210420
  Serious: Yes (Other)
  Sender: FDA-Public Use
  Company Number: CA-ABBVIE-20K-028-3443010-00

PATIENT
  Age: 57 Year
  Sex: Male

DRUGS (1)
  1. SKYRIZI [Suspect]
     Active Substance: RISANKIZUMAB-RZAA
     Indication: PSORIASIS
     Route: 058
     Dates: start: 20191031

REACTIONS (3)
  - Foot deformity [Not Recovered/Not Resolved]
  - Pain in extremity [Recovered/Resolved]
  - Plantar fascial fibromatosis [Recovered/Resolved]

NARRATIVE: CASE EVENT DATE: 2020
